FAERS Safety Report 8777003 (Version 1)
Quarter: 2012Q4

REPORT INFORMATION
  Report Type: 
  Country: ES (occurrence: ES)
  Receive Date: 20120911
  Receipt Date: 20120911
  Transmission Date: 20130627
  Serious: Yes (Other)
  Sender: FDA-Public Use
  Company Number: ES-GLAXOSMITHKLINE-B0829299A

PATIENT
  Age: 53 Year
  Sex: Male

DRUGS (1)
  1. CEFUROXIME [Suspect]
     Route: 065

REACTIONS (2)
  - Anaphylactic reaction [Recovered/Resolved]
  - Accidental exposure to product [Unknown]
